FAERS Safety Report 6849390-0 (Version None)
Quarter: 2010Q3

REPORT INFORMATION
  Report Type: 
  Country: None (occurrence: None)
  Receive Date: 20100716
  Receipt Date: 20100705
  Transmission Date: 20110219
  Serious: Yes (Other)
  Sender: FDA-Public Use
  Company Number: GB-ELI_LILLY_AND_COMPANY-GB201007000826

PATIENT
  Age: 52 Year
  Sex: Male
  Weight: 108 kg

DRUGS (13)
  1. DULOXETINE HYDROCHLORIDE [Suspect]
     Indication: PAIN
     Dosage: 30 MG, UNKNOWN
     Route: 048
     Dates: start: 20100430
  2. FENTANYL [Concomitant]
     Indication: PAIN
     Dosage: 50 UG, UNK
  3. ASPIRIN [Concomitant]
     Dosage: 75 MG, UNK
  4. ATORVASTATIN [Concomitant]
     Dosage: 80 MG, UNK
  5. DIAMICRON [Concomitant]
     Dosage: 30 MG, UNK
  6. DOXAZOSIN [Concomitant]
     Dosage: 8 MG, UNK
  7. GABAPENTIN [Concomitant]
     Dosage: 300 MG, 3/D
  8. INDAPAMIDE [Concomitant]
     Dosage: 2.5 MG, UNK
  9. IVABRADINE [Concomitant]
     Dosage: 7.5 MG, 2/D
  10. METFORMIN HCL [Concomitant]
     Dosage: 1 G, 2/D
  11. OMEPRAZOLE [Concomitant]
     Dosage: 20 MG, UNK
  12. ACETAMINOPHEN [Concomitant]
     Dosage: UNK, AS NEEDED
  13. TILDIEM LA [Concomitant]
     Dosage: 30 MG, UNK

REACTIONS (2)
  - INHIBITORY DRUG INTERACTION [None]
  - OFF LABEL USE [None]
